FAERS Safety Report 8816611 (Version 1)
Quarter: 2012Q4

REPORT INFORMATION
  Report Type: Spontaneous
  Country: CH (occurrence: None)
  Receive Date: 20120928
  Receipt Date: 20120928
  Transmission Date: 20130627
  Serious: Yes (Hospitalization)
  Sender: FDA-Public Use
  Company Number: 20120588

PATIENT
  Sex: Male

DRUGS (1)
  1. VENOFER [Suspect]
     Route: 042

REACTIONS (4)
  - Chills [None]
  - Body temperature increased [None]
  - Dyspnoea [None]
  - Chest discomfort [None]
